FAERS Safety Report 7981360-1 (Version None)
Quarter: 2011Q4

REPORT INFORMATION
  Report Type: 
  Country: None (occurrence: None)
  Receive Date: 20111212
  Receipt Date: 20111129
  Transmission Date: 20120403
  Serious: Yes (Death, Other)
  Sender: FDA-Public Use
  Company Number: CIP-2011-00940

PATIENT

DRUGS (3)
  1. PLACEBO [Suspect]
     Indication: INFECTION
     Dosage: (ON DAYS 5 TO 10 EACH 3 WEEK CYCLE), ORAL
     Route: 048
  2. DOCETAXEL [Suspect]
     Indication: NON-SMALL CELL LUNG CANCER
     Dosage: 75 MG/M2 (DAY 1 EVERY 3 WEEKS)
  3. CARBOPLATIN [Suspect]
     Indication: NON-SMALL CELL LUNG CANCER
     Dosage: AREA UNDER THE CURVE 6 (DAY 1 EVERY 3 WEEKS)

REACTIONS (2)
  - SEPSIS [None]
  - NEUTROPENIA [None]
